FAERS Safety Report 8487184-3 (Version None)
Quarter: 2012Q3

REPORT INFORMATION
  Report Type: 
  Country: None (occurrence: None)
  Receive Date: 20120704
  Receipt Date: 20120626
  Transmission Date: 20120928
  Serious: Yes (Death)
  Sender: FDA-Public Use
  Company Number: JP-ROCHE-1082948

PATIENT
  Sex: Male
  Weight: 61 kg

DRUGS (3)
  1. PEGASYS [Suspect]
     Indication: HEPATITIS C
     Route: 058
     Dates: start: 20110509, end: 20110711
  2. COPEGUS [Suspect]
     Indication: HEPATITIS C
     Route: 048
     Dates: start: 20110509, end: 20110718
  3. MINOPHAGEN C [Concomitant]
     Indication: HEPATITIS C
     Route: 042

REACTIONS (1)
  - DEATH [None]
